FAERS Safety Report 10693019 (Version 1)
Quarter: 2015Q1

REPORT INFORMATION
  Report Type: Spontaneous
  Country: US (occurrence: None)
  Receive Date: 20150105
  Receipt Date: 20150105
  Transmission Date: 20150720
  Serious: No
  Sender: FDA-Public Use
  Company Number: None

PATIENT
  Sex: Female

DRUGS (1)
  1. ZOVIRAX [Suspect]
     Active Substance: ACYCLOVIR

REACTIONS (1)
  - Drug ineffective [None]
